FAERS Safety Report 4348494-4 (Version None)
Quarter: 2004Q2

REPORT INFORMATION
  Report Type: 
  Country: None (occurrence: None)
  Receive Date: 20040423
  Receipt Date: 20040414
  Transmission Date: 20050107
  Serious: Yes (Other)
  Sender: FDA-Public Use
  Company Number: 200411849BCC

PATIENT
  Sex: Female

DRUGS (1)
  1. ASPIRIN [Suspect]

REACTIONS (2)
  - CARDIAC VALVE DISEASE [None]
  - GASTRIC DISORDER [None]
